FAERS Safety Report 4734080-0 (Version None)
Quarter: 2005Q3

REPORT INFORMATION
  Report Type: 
  Country: None (occurrence: None)
  Receive Date: 20050803
  Receipt Date: 20050803
  Transmission Date: 20060218
  Serious: No
  Sender: FDA-Public Use
  Company Number: None

PATIENT
  Age: 56 Year
  Sex: Female
  Weight: 64.41 kg

DRUGS (5)
  1. ELOXATIN [Suspect]
     Indication: RENAL CANCER METASTATIC
     Dosage: 136MG EVERY 3 WEEKS INTRAVENOU
     Route: 042
     Dates: start: 20050405, end: 20050726
  2. AVASTIN [Concomitant]
  3. FLUOROURACIL [Concomitant]
  4. LEUCOVORIN [Concomitant]
  5. ERBITUX [Concomitant]

REACTIONS (3)
  - ERYTHEMA [None]
  - PRURITUS [None]
  - URTICARIA [None]
